FAERS Safety Report 15143467 (Version 2)
Quarter: 2018Q3

REPORT INFORMATION
  Report Type: Spontaneous
  Country: US (occurrence: US)
  Receive Date: 20180713
  Receipt Date: 20180716
  Transmission Date: 20181010
  Serious: Yes (Other)
  Sender: FDA-Public Use
  Company Number: US-LUNDBECK-DKLU2051343

PATIENT
  Sex: Male

DRUGS (1)
  1. ONFI [Suspect]
     Active Substance: CLOBAZAM
     Indication: EPILEPSY
     Route: 048
     Dates: start: 2016

REACTIONS (2)
  - Aggression [Unknown]
  - Drug withdrawal convulsions [Unknown]
